FAERS Safety Report 4936372-9 (Version None)
Quarter: 2006Q1

REPORT INFORMATION
  Report Type: 
  Country: None (occurrence: None)
  Receive Date: 20060302
  Receipt Date: 20060209
  Transmission Date: 20060701
  Serious: Yes (Other)
  Sender: FDA-Public Use
  Company Number: US200602002250

PATIENT
  Age: 63 Year
  Sex: Male

DRUGS (5)
  1. FORTEO [Suspect]
     Indication: FRACTURE
     Dates: start: 20050913, end: 20060104
  2. FORTEO [Concomitant]
  3. ANTIHYPERTENSIVES [Concomitant]
  4. PROTONIX [Concomitant]
  5. FOSAMAX [Concomitant]

REACTIONS (5)
  - BED REST [None]
  - BLOOD CALCIUM INCREASED [None]
  - MULTIPLE FRACTURES [None]
  - MULTIPLE MYELOMA [None]
  - SPINAL FRACTURE [None]
